FAERS Safety Report 15636039 (Version 1)
Quarter: 2018Q4

REPORT INFORMATION
  Report Type: Spontaneous
  Country: None (occurrence: US)
  Receive Date: 20181120
  Receipt Date: 20181120
  Transmission Date: 20190205
  Serious: No
  Sender: FDA-Public Use
  Company Number: US-OC PHARMA-000029

PATIENT
  Sex: Female

DRUGS (1)
  1. NORGESTIMATE, ETHINYL ESTRADIOL [Suspect]
     Active Substance: ETHINYL ESTRADIOL\NORGESTIMATE

REACTIONS (2)
  - Menstruation irregular [Unknown]
  - Dysmenorrhoea [Unknown]
